FAERS Safety Report 7656031-1 (Version None)
Quarter: 2011Q3

REPORT INFORMATION
  Report Type: 
  Country: None (occurrence: None)
  Receive Date: 20110804
  Receipt Date: 20110728
  Transmission Date: 20111222
  Serious: Yes (Other)
  Sender: FDA-Public Use
  Company Number: CN-ROCHE-790867

PATIENT
  Age: 45 Year
  Sex: Female

DRUGS (2)
  1. XELODA [Suspect]
     Route: 065
  2. XELODA [Suspect]
     Dosage: ONE WEEK AFTER THE FIRST THERAPY.
     Route: 065

REACTIONS (2)
  - DRUG INEFFECTIVE [None]
  - BREAST CANCER METASTATIC [None]
